FAERS Safety Report 8563629-5 (Version None)
Quarter: 2012Q3

REPORT INFORMATION
  Report Type: 
  Country: None (occurrence: None)
  Receive Date: 20120803
  Receipt Date: 20120725
  Transmission Date: 20120928
  Serious: Yes (Other)
  Sender: FDA-Public Use
  Company Number: US-BIOGENIDEC-2012BI022614

PATIENT
  Age: 54 Year
  Sex: Female

DRUGS (3)
  1. AUGMENTIN '500' [Concomitant]
     Indication: SINUSITIS
  2. TYSABRI [Suspect]
     Indication: MULTIPLE SCLEROSIS
     Route: 042
     Dates: start: 20111219, end: 20120416
  3. AZITHROMYCIN [Concomitant]
     Indication: SINUSITIS

REACTIONS (1)
  - IDIOPATHIC THROMBOCYTOPENIC PURPURA [None]
